FAERS Safety Report 6114935-5 (Version None)
Quarter: 2009Q1

REPORT INFORMATION
  Report Type: 
  Country: None (occurrence: None)
  Receive Date: 20090313
  Receipt Date: 20090304
  Transmission Date: 20090719
  Serious: Yes (Hospitalization)
  Sender: FDA-Public Use
  Company Number: US-ELI_LILLY_AND_COMPANY-US200811004501

PATIENT
  Sex: Male

DRUGS (10)
  1. CYMBALTA [Suspect]
     Dosage: 30 MG, DAILY (1/D)
     Dates: start: 20061212, end: 20070205
  2. CYMBALTA [Suspect]
     Dosage: 60 MG, DAILY (1/D)
     Dates: start: 20070206, end: 20080116
  3. CYMBALTA [Suspect]
     Dosage: 30 MG, DAILY (1/D)
     Dates: start: 20080117, end: 20080101
  4. DEPAKOTE [Concomitant]
     Indication: BIPOLAR DISORDER
     Dosage: 125 MG, 2/D
     Dates: start: 20071017
  5. DEPAKOTE [Concomitant]
     Dosage: 250 MG, 2/D
     Dates: start: 20071115
  6. DEPAKOTE [Concomitant]
     Dosage: 500 MG, 2/D
     Dates: start: 20080108, end: 20080430
  7. FLUOXETINE [Concomitant]
     Dosage: UNK, UNK
     Dates: start: 20061130, end: 20060101
  8. TRAZODONE HCL [Concomitant]
     Dosage: 50 MG, DAILY (1/D)
     Dates: start: 20061130, end: 20071017
  9. PAXIL [Concomitant]
     Dosage: UNK, UNK
     Dates: start: 20060101, end: 20061212
  10. ATOMOXETINE HCL [Concomitant]
     Dosage: 80 MG, UNK
     Dates: start: 20070108, end: 20071017

REACTIONS (8)
  - ASTERIXIS [None]
  - BIPOLAR DISORDER [None]
  - FALL [None]
  - GAIT DISTURBANCE [None]
  - HEPATIC FAILURE [None]
  - NAUSEA [None]
  - PLATELET COUNT DECREASED [None]
  - SEDATION [None]
